FAERS Safety Report 14201864 (Version 2)
Quarter: 2017Q4

REPORT INFORMATION
  Report Type: Report from Study
  Country: None (occurrence: IE)
  Receive Date: 20171117
  Receipt Date: 20171129
  Transmission Date: 20180321
  Serious: Yes (Other)
  Sender: FDA-Public Use
  Company Number: IE-ABBVIE-17P-229-2166263-00

PATIENT
  Age: 70 Year
  Sex: Male

DRUGS (2)
  1. VENETOCLAX. [Suspect]
     Active Substance: VENETOCLAX
     Route: 048
  2. VENETOCLAX. [Suspect]
     Active Substance: VENETOCLAX
     Indication: CHRONIC LYMPHOCYTIC LEUKAEMIA
     Route: 048

REACTIONS (5)
  - Lymphadenopathy [Unknown]
  - Hypercalcaemia [Unknown]
  - Blood lactate dehydrogenase increased [Unknown]
  - Richter^s syndrome [Unknown]
  - Malignant lymphoma unclassifiable high grade [Unknown]
